FAERS Safety Report 9668384 (Version 1)
Quarter: 2013Q4

REPORT INFORMATION
  Report Type: Report from Study
  Country: US (occurrence: US)
  Receive Date: 20131104
  Receipt Date: 20131104
  Transmission Date: 20140711
  Serious: Yes (Hospitalization, Other)
  Sender: FDA-Public Use
  Company Number: PHHY2013US124081

PATIENT
  Age: 70 Year
  Sex: Male

DRUGS (3)
  1. EVEROLIMUS [Suspect]
     Indication: NEUROENDOCRINE CARCINOMA
     Dosage: 10 MG, DAILY
     Route: 048
     Dates: start: 20120906
  2. BEVACIZUMAB [Suspect]
     Indication: NEUROENDOCRINE CARCINOMA
     Dosage: OVER 30-90 MINUTES ON DAY 1 AND 15; 28 DAYS CYCLE
     Dates: start: 20120906
  3. OCTREOTIDE ACETATE [Suspect]
     Indication: NEUROENDOCRINE CARCINOMA
     Dosage: 20 MG, ON DAY 1 IN 28 DAYS CYCLE
     Route: 030
     Dates: start: 20120906

REACTIONS (9)
  - Encephalopathy [Unknown]
  - Mental status changes [Unknown]
  - Deep vein thrombosis [Unknown]
  - Oedema peripheral [Unknown]
  - International normalised ratio increased [Unknown]
  - Pulmonary embolism [Unknown]
  - Diarrhoea [Unknown]
  - Herpes zoster [Unknown]
  - Abdominal pain [Unknown]
